FAERS Safety Report 6463024-9 (Version None)
Quarter: 2009Q4

REPORT INFORMATION
  Report Type: 
  Country: None (occurrence: None)
  Receive Date: 20091130
  Receipt Date: 20091116
  Transmission Date: 20100525
  Serious: Yes (Other)
  Sender: FDA-Public Use
  Company Number: JP-PFIZER INC-2009298768

PATIENT
  Age: 49 Year
  Sex: Male

DRUGS (4)
  1. PENICILLIN G [Suspect]
     Dosage: 4 MILLION UNITS EVERY 4 HOURS
  2. GENTAMICIN [Concomitant]
     Dosage: 180 MG, 3X/DAY
  3. TOSUFLOXACIN [Concomitant]
     Indication: PROSTATITIS
     Dosage: UNK
  4. DICLOFENAC [Concomitant]
     Indication: PAIN
     Dosage: UNK

REACTIONS (2)
  - CYSTITIS HAEMORRHAGIC [None]
  - HYDRONEPHROSIS [None]
